FAERS Safety Report 18236341 (Version 1)
Quarter: 2020Q3

REPORT INFORMATION
  Report Type: Spontaneous
  Country: IN (occurrence: IN)
  Receive Date: 20200907
  Receipt Date: 20200907
  Transmission Date: 20201103
  Serious: Yes (Other)
  Sender: FDA-Public Use
  Company Number: IN-SUN PHARMACEUTICAL INDUSTRIES LTD-2020R1-259467

PATIENT
  Age: 46 Year
  Sex: Female

DRUGS (1)
  1. OCTREOTIDE. [Suspect]
     Active Substance: OCTREOTIDE
     Indication: THYROID STIMULATING HORMONE-PRODUCING PITUITARY TUMOUR
     Dosage: UNK
     Route: 065

REACTIONS (1)
  - Thyroiditis [Unknown]
